FAERS Safety Report 13186317 (Version 1)
Quarter: 2017Q1

REPORT INFORMATION
  Report Type: Spontaneous
  Country: FR (occurrence: FR)
  Receive Date: 20170204
  Receipt Date: 20170204
  Transmission Date: 20170428
  Serious: Yes (Other)
  Sender: FDA-Public Use
  Company Number: FR-AMGEN-FRASP2016172554

PATIENT
  Age: 51 Year
  Sex: Male

DRUGS (1)
  1. ENBREL [Suspect]
     Active Substance: ETANERCEPT
     Indication: PRODUCT USED FOR UNKNOWN INDICATION
     Dosage: UNK
     Route: 065
     Dates: start: 2006

REACTIONS (7)
  - Spondylitis [Unknown]
  - Pain in extremity [Recovering/Resolving]
  - Multiple sclerosis [Unknown]
  - Nuclear magnetic resonance imaging spinal abnormal [Unknown]
  - Nuclear magnetic resonance imaging brain abnormal [Unknown]
  - CSF test abnormal [Unknown]
  - Paraesthesia [Recovering/Resolving]

NARRATIVE: CASE EVENT DATE: 2016
